FAERS Safety Report 7990250-X (Version None)
Quarter: 2011Q4

REPORT INFORMATION
  Report Type: 
  Country: None (occurrence: None)
  Receive Date: 20111219
  Receipt Date: 20110607
  Transmission Date: 20120403
  Serious: No
  Sender: FDA-Public Use
  Company Number: US-ASTRAZENECA-2011SE35174

PATIENT
  Age: 65 Year
  Weight: 69.9 kg

DRUGS (4)
  1. AVODART [Concomitant]
  2. CRESTOR [Suspect]
     Indication: BLOOD CHOLESTEROL
     Route: 048
     Dates: start: 20090101
  3. NEXIUM [Concomitant]
  4. NIASPAN [Concomitant]

REACTIONS (1)
  - CATARACT [None]
